FAERS Safety Report 4674149-2 (Version None)
Quarter: 2005Q2

REPORT INFORMATION
  Report Type: 
  Country: None (occurrence: None)
  Receive Date: 20050524
  Receipt Date: 20050524
  Transmission Date: 20051028
  Serious: Yes (Hospitalization)
  Sender: FDA-Public Use
  Company Number: None

PATIENT
  Age: 64 Year
  Sex: Male

DRUGS (4)
  1. VERAPAMIL [Suspect]
     Indication: DIABETES MELLITUS
  2. VERAPAMIL [Suspect]
     Indication: HYPERTENSION
  3. ATENOLOL [Suspect]
     Indication: CORONARY ARTERY DISEASE
  4. TIMOLOL EYE DROPS [Suspect]

REACTIONS (9)
  - ATRIOVENTRICULAR BLOCK COMPLETE [None]
  - BLOOD PRESSURE SYSTOLIC DECREASED [None]
  - BRADYCARDIA [None]
  - DEHYDRATION [None]
  - DIZZINESS [None]
  - HYPERHIDROSIS [None]
  - HYPERKALAEMIA [None]
  - HYPERTENSION [None]
  - RENAL IMPAIRMENT [None]
